FAERS Safety Report 15463373 (Version 1)
Quarter: 2018Q4

REPORT INFORMATION
  Report Type: Spontaneous
  Country: US (occurrence: US)
  Receive Date: 20181004
  Receipt Date: 20181004
  Transmission Date: 20190204
  Serious: No
  Sender: FDA-Public Use
  Company Number: US-BAYER-2018-185167

PATIENT
  Age: 81 Year
  Sex: Male
  Weight: 72.97 kg

DRUGS (2)
  1. MIRALAX [Suspect]
     Active Substance: POLYETHYLENE GLYCOL 3350
     Indication: GASTROINTESTINAL DISORDER
     Dosage: UNK, 17 MG IN 4 TO 8 OUNCES DOSE
     Route: 048
     Dates: start: 20181001
  2. OXYCODONE [Concomitant]
     Active Substance: OXYCODONE

REACTIONS (1)
  - Underdose [Unknown]

NARRATIVE: CASE EVENT DATE: 20181001
